FAERS Safety Report 13965613 (Version 2)
Quarter: 2017Q3

REPORT INFORMATION
  Report Type: Spontaneous
  Country: DE (occurrence: DE)
  Receive Date: 20170913
  Receipt Date: 20170920
  Transmission Date: 20171128
  Serious: Yes (Other)
  Sender: FDA-Public Use
  Company Number: DE-PFIZER INC-2017390028

PATIENT
  Sex: Male

DRUGS (9)
  1. MORPHIN AL [Suspect]
     Active Substance: MORPHINE SULFATE
     Dosage: 100 MG, 3X/DAY
     Route: 048
  2. LYRICA [Suspect]
     Active Substance: PREGABALIN
     Dosage: UNK
     Route: 048
  3. SIMVA ARISTO [Concomitant]
     Dosage: 40 MG, 1X/DAY
     Route: 048
  4. ASS 1 A PHARMA [Concomitant]
     Dosage: 100 MG, 1X/DAY
     Route: 048
  5. SEVREDOL [Suspect]
     Active Substance: MORPHINE
     Dosage: UNK, AS NEEDED (MAXIMUM TWICE A DAY)
     Route: 048
  6. MORPHIN AL [Suspect]
     Active Substance: MORPHINE SULFATE
     Dosage: 60 MG, 2X/DAY
     Route: 048
  7. RAMILICH [Concomitant]
     Active Substance: RAMIPRIL
     Dosage: 2.5 MG, 1X/DAY
     Route: 048
  8. TORASEMID ABZ [Concomitant]
     Dosage: 25 MG, DAILY
     Route: 048
  9. PANTOPRAZOLE ABZ [Concomitant]
     Dosage: 40 MG, 2X/DAY
     Route: 048

REACTIONS (8)
  - Somnolence [Recovered/Resolved]
  - Weight increased [Recovered/Resolved]
  - Fatigue [Recovered/Resolved]
  - Disturbance in attention [Recovered/Resolved]
  - Depressed level of consciousness [Recovered/Resolved]
  - Fall [Recovered/Resolved]
  - Visual impairment [Recovered/Resolved]
  - Overdose [Recovered/Resolved]
